FAERS Safety Report 6417670-9 (Version None)
Quarter: 2009Q4

REPORT INFORMATION
  Report Type: 
  Country: None (occurrence: None)
  Receive Date: 20091028
  Receipt Date: 20091015
  Transmission Date: 20100525
  Serious: Yes (Hospitalization)
  Sender: FDA-Public Use
  Company Number: PHHY2009MX43891

PATIENT
  Age: 71 Year
  Sex: Female

DRUGS (4)
  1. DIOVAN [Suspect]
     Indication: HYPERTENSION
     Dosage: 1 TABLET (80 MG) PER DAY
     Dates: start: 20070101, end: 20090901
  2. DIOVAN [Suspect]
     Dosage: 1 TABLET (160 MG) PER DAY
     Dates: start: 20090901
  3. HIDROXIN [Concomitant]
  4. ADALAT [Concomitant]

REACTIONS (5)
  - EYE DISORDER [None]
  - EYE PAIN [None]
  - FATIGUE [None]
  - FEELING ABNORMAL [None]
  - HYPERTENSION [None]
